FAERS Safety Report 6215041-1 (Version None)
Quarter: 2009Q2

REPORT INFORMATION
  Report Type: 
  Country: None (occurrence: None)
  Receive Date: 20090604
  Receipt Date: 20081126
  Transmission Date: 20091009
  Serious: No
  Sender: FDA-Public Use
  Company Number: US-ASTRAZENECA-2008UW26480

PATIENT
  Age: 77 Year
  Sex: Female
  Weight: 70.3 kg

DRUGS (3)
  1. PRILOSEC [Suspect]
     Route: 048
  2. THYROID MEDICATION [Concomitant]
  3. CHOLESTEROL MEDICATION [Concomitant]

REACTIONS (1)
  - TONGUE DISORDER [None]
